FAERS Safety Report 15127218 (Version 3)
Quarter: 2018Q3

REPORT INFORMATION
  Report Type: Spontaneous
  Country: DE (occurrence: DE)
  Receive Date: 20180710
  Receipt Date: 20180919
  Transmission Date: 20181010
  Serious: Yes (Other)
  Sender: FDA-Public Use
  Company Number: PHHY2018DE075955

PATIENT
  Age: 39 Year
  Sex: Male

DRUGS (1)
  1. EXTAVIA [Suspect]
     Active Substance: INTERFERON BETA-1B
     Indication: PRODUCT USED FOR UNKNOWN INDICATION
     Dosage: 250 UG/ML, QOD
     Route: 050
     Dates: start: 200905

REACTIONS (5)
  - Scar [Unknown]
  - Incorrect route of drug administration [Unknown]
  - Musculoskeletal pain [Recovered/Resolved with Sequelae]
  - Necrosis [Unknown]
  - Musculoskeletal pain [Unknown]

NARRATIVE: CASE EVENT DATE: 20180401
